FAERS Safety Report 5262699-X (Version None)
Quarter: 2007Q1

REPORT INFORMATION
  Report Type: 
  Country: None (occurrence: None)
  Receive Date: 20070312
  Receipt Date: 20070301
  Transmission Date: 20070707
  Serious: Yes (Other)
  Sender: FDA-Public Use
  Company Number: US-AVENTIS-200619699US

PATIENT
  Sex: Female

DRUGS (9)
  1. KETEK [Suspect]
     Indication: PNEUMONIA
     Route: 048
     Dates: start: 20051108, end: 20051201
  2. KETEK [Suspect]
     Dates: start: 20051203
  3. KETEK [Suspect]
     Indication: BRONCHITIS
     Route: 048
     Dates: start: 20051108, end: 20051201
  4. KETEK [Suspect]
     Dates: start: 20051203
  5. MEDROL [Concomitant]
     Route: 030
     Dates: start: 20051108, end: 20051108
  6. ALBUTEROL [Concomitant]
     Dosage: DOSE: UNK
     Dates: start: 20051108
  7. VOSPIRE ER [Concomitant]
     Dates: start: 20051108
  8. ADVAIR DISKUS 100/50 [Concomitant]
     Dosage: DOSE: 250/50
     Dates: start: 20051108
  9. MACROBID                           /00024401/ [Concomitant]
     Dosage: DOSE: UNK
     Dates: start: 20051108

REACTIONS (8)
  - ALANINE AMINOTRANSFERASE INCREASED [None]
  - ASPARTATE AMINOTRANSFERASE INCREASED [None]
  - BLOOD ALKALINE PHOSPHATASE INCREASED [None]
  - FATIGUE [None]
  - HEPATITIS [None]
  - MALAISE [None]
  - PRURITUS [None]
  - PYREXIA [None]
